FAERS Safety Report 4411874-2 (Version None)
Quarter: 2004Q3

REPORT INFORMATION
  Report Type: 
  Country: None (occurrence: None)
  Receive Date: 20040730
  Receipt Date: 20030701
  Transmission Date: 20050211
  Serious: No
  Sender: FDA-Public Use
  Company Number: 1C-03-063

PATIENT
  Age: 74 Year
  Sex: Male

DRUGS (7)
  1. RANITIDINE [Suspect]
     Indication: GASTRIC DISORDER
     Dosage: 300MG PER DAY
     Route: 048
     Dates: start: 20011101
  2. RANITIDINE [Suspect]
     Dosage: 300MG PER DAY
  3. PREDNISONE [Suspect]
     Dosage: 7.5MG ALTERNATE DAYS
     Route: 065
  4. DIGOXIN [Concomitant]
  5. WARFARIN SODIUM [Concomitant]
  6. PRAVACHOL [Concomitant]
  7. CELLCEPT [Concomitant]

REACTIONS (1)
  - PLATELET COUNT DECREASED [None]
